FAERS Safety Report 10242541 (Version 3)
Quarter: 2014Q4

REPORT INFORMATION
  Report Type: Spontaneous
  Country: US (occurrence: US)
  Receive Date: 20140617
  Receipt Date: 20141006
  Transmission Date: 20150528
  Serious: Yes (Hospitalization, Other)
  Sender: FDA-Public Use
  Company Number: US-TEVA-488809USA

PATIENT
  Sex: Male

DRUGS (2)
  1. BENDAMUSTINE HYDROCHLORIDE [Suspect]
     Active Substance: BENDAMUSTINE HYDROCHLORIDE
     Indication: CHRONIC LYMPHOCYTIC LEUKAEMIA
     Dosage: UNK, CYCLIC (4 CYCLES)
     Route: 065
  2. RITUXIMAB [Suspect]
     Active Substance: RITUXIMAB
     Indication: CHRONIC LYMPHOCYTIC LEUKAEMIA
     Dosage: UNK, CYCLIC (4 CYCLES)
     Route: 065

REACTIONS (8)
  - Guillain-Barre syndrome [Unknown]
  - Herpes zoster [Recovered/Resolved]
  - Diarrhoea [Recovered/Resolved]
  - Neutropenia [Unknown]
  - Chronic lymphocytic leukaemia [Recovered/Resolved]
  - Pancytopenia [Recovered/Resolved]
  - Inappropriate antidiuretic hormone secretion [Unknown]
  - Fatigue [Recovered/Resolved]
